FAERS Safety Report 7233613-2 (Version None)
Quarter: 2011Q1

REPORT INFORMATION
  Report Type: 
  Country: None (occurrence: None)
  Receive Date: 20110119
  Receipt Date: 20110113
  Transmission Date: 20110831
  Serious: Yes (Congenital Anomaly)
  Sender: FDA-Public Use
  Company Number: TW-MERCK-1012USA02430B1

PATIENT

DRUGS (1)
  1. PROSCAR [Suspect]
     Indication: DRUG EXPOSURE DURING PREGNANCY
     Route: 064

REACTIONS (3)
  - POLYDACTYLY [None]
  - MENTAL RETARDATION [None]
  - DRUG EXPOSURE DURING PREGNANCY [None]
